FAERS Safety Report 7486107-3 (Version None)
Quarter: 2011Q2

REPORT INFORMATION
  Report Type: 
  Country: None (occurrence: None)
  Receive Date: 20110517
  Receipt Date: 20110509
  Transmission Date: 20111010
  Serious: Yes (Hospitalization)
  Sender: FDA-Public Use
  Company Number: FR-GENENTECH-318787

PATIENT
  Sex: Male

DRUGS (2)
  1. RITUXAN [Suspect]
     Indication: DERMATOMYOSITIS
     Dosage: 375 MG/M2, 1/WEEK
     Route: 042
     Dates: start: 20100501, end: 20100601
  2. CELLCEPT [Suspect]
     Indication: PRODUCT USED FOR UNKNOWN INDICATION
     Dosage: UNK
     Route: 048
     Dates: start: 20070101, end: 20100501

REACTIONS (2)
  - CONGESTIVE CARDIOMYOPATHY [None]
  - LEFT VENTRICULAR FAILURE [None]
